FAERS Safety Report 5960378-4 (Version None)
Quarter: 2008Q4

REPORT INFORMATION
  Report Type: 
  Country: None (occurrence: None)
  Receive Date: 20081114
  Receipt Date: 20080724
  Transmission Date: 20090506
  Serious: Yes (Hospitalization)
  Sender: FDA-Public Use
  Company Number: 2008S1000252

PATIENT
  Age: 63 Year
  Sex: Male
  Weight: 86 kg

DRUGS (16)
  1. CUBICIN [Suspect]
     Indication: POSTOPERATIVE WOUND INFECTION
     Dosage: 5.8 MG/KG;Q8H;IV
     Route: 042
  2. METOPROLOL [Concomitant]
  3. ZOLOFT /01011402/ [Concomitant]
  4. KLONOPIN [Concomitant]
  5. BENICAR [Concomitant]
  6. HYDROCHLOROTHIAZIDE [Concomitant]
  7. WELLBUTRIN [Concomitant]
  8. YEAST [Concomitant]
  9. ASPIRIN [Concomitant]
  10. FENTANYL-100 [Concomitant]
  11. DARVOCET /00758701/ [Concomitant]
  12. POTASSIUM CHLORIDE [Concomitant]
  13. NORVASC [Concomitant]
  14. XANAX [Concomitant]
  15. COLACE [Concomitant]
  16. LACTULOSE [Concomitant]

REACTIONS (2)
  - INAPPROPRIATE SCHEDULE OF DRUG ADMINISTRATION [None]
  - OVERDOSE [None]
